FAERS Safety Report 5205997-8 (Version None)
Quarter: 2006Q4

REPORT INFORMATION
  Report Type: 
  Country: None (occurrence: None)
  Receive Date: 20061027
  Receipt Date: 20060720
  Transmission Date: 20070319
  Serious: No
  Sender: FDA-Public Use
  Company Number: 200616165US

PATIENT
  Age: 72 Year
  Sex: Female

DRUGS (7)
  1. KETEK [Suspect]
     Indication: HEADACHE
     Dosage: 400 MG QD PO
     Route: 048
     Dates: start: 20060714, end: 20060718
  2. KETEK [Suspect]
     Indication: PHARYNGOLARYNGEAL PAIN
     Dosage: 400 MG QD PO
     Route: 048
     Dates: start: 20060714, end: 20060718
  3. CAFFEINE [Concomitant]
  4. BUTALBITAL [Concomitant]
  5. PARACETAMOL (FIORICET) [Concomitant]
  6. IMITREX [Concomitant]
  7. HORMONES [Concomitant]

REACTIONS (3)
  - ORAL DISCOMFORT [None]
  - ORAL FUNGAL INFECTION [None]
  - STOMATITIS [None]
